FAERS Safety Report 5234286-0 (Version None)
Quarter: 2007Q1

REPORT INFORMATION
  Report Type: 
  Country: None (occurrence: None)
  Receive Date: 20070209
  Receipt Date: 20070202
  Transmission Date: 20070707
  Serious: Yes (Life-Threatening, Hospitalization, Other)
  Sender: FDA-Public Use
  Company Number: GB-BAYER-200710143BNE

PATIENT
  Age: 61 Year
  Sex: Male

DRUGS (3)
  1. ASPIRIN [Suspect]
     Indication: MYOCARDIAL INFARCTION
  2. ENOXAPARIN SODIUM [Suspect]
     Indication: MYOCARDIAL INFARCTION
  3. TENECTEPLASE [Suspect]
     Indication: MYOCARDIAL INFARCTION

REACTIONS (14)
  - ACUTE RESPIRATORY DISTRESS SYNDROME [None]
  - ASPIRATION [None]
  - CEREBRAL HAEMATOMA [None]
  - CONVULSION [None]
  - FACIAL PARESIS [None]
  - HEADACHE [None]
  - HYPERCAPNIA [None]
  - HYPOTENSION [None]
  - HYPOXIA [None]
  - INTRACRANIAL PRESSURE INCREASED [None]
  - POLYNEUROPATHY [None]
  - PUPILS UNEQUAL [None]
  - SEPTIC SHOCK [None]
  - VISUAL DISTURBANCE [None]
